FAERS Safety Report 4757909-9 (Version None)
Quarter: 2005Q3

REPORT INFORMATION
  Report Type: 
  Country: None (occurrence: None)
  Receive Date: 20050830
  Receipt Date: 20050815
  Transmission Date: 20060218
  Serious: Yes (Death)
  Sender: FDA-Public Use
  Company Number: 2005US001118

PATIENT
  Age: 49 Year
  Sex: Female

DRUGS (3)
  1. PROGRAF [Suspect]
     Indication: PROPHYLAXIS AGAINST TRANSPLANT REJECTION
  2. MYCOPHENOLATE MOFETIL (MYCOPHENOLATE MOFETIL) [Suspect]
     Indication: PROPHYLAXIS AGAINST TRANSPLANT REJECTION
  3. CORTICOSTEROIDS () [Suspect]
     Indication: PROPHYLAXIS AGAINST TRANSPLANT REJECTION

REACTIONS (5)
  - DIFFICULT TO WEAN FROM VENTILATOR [None]
  - RESPIRATORY TRACT HAEMORRHAGE [None]
  - RESPIRATORY TRACT INFECTION BACTERIAL [None]
  - RESPIRATORY TRACT INFECTION FUNGAL [None]
  - RESUSCITATION [None]
